FAERS Safety Report 9712466 (Version 1)
Quarter: 2013Q4

REPORT INFORMATION
  Report Type: Spontaneous
  Country: US (occurrence: US)
  Receive Date: 20131126
  Receipt Date: 20131126
  Transmission Date: 20140711
  Serious: No
  Sender: FDA-Public Use
  Company Number: US-BRISTOL-MYERS SQUIBB COMPANY-19181478

PATIENT
  Age: 66 Year
  Sex: Male
  Weight: 99.77 kg

DRUGS (7)
  1. BYDUREON [Suspect]
     Dosage: 2MG/QW
     Route: 058
  2. METFORMIN [Concomitant]
  3. ASPIRIN [Concomitant]
  4. SIMVASTATIN [Concomitant]
  5. LISINOPRIL [Concomitant]
  6. HYDROCHLOROTHIAZIDE [Concomitant]
     Dosage: TAKE .5 TABLET QD
  7. RANITIDINE [Concomitant]

REACTIONS (1)
  - Injection site haemorrhage [Unknown]
